FAERS Safety Report 22283138 (Version 4)
Quarter: 2023Q4

REPORT INFORMATION
  Report Type: Spontaneous
  Country: JP (occurrence: JP)
  Receive Date: 20230504
  Receipt Date: 20231006
  Transmission Date: 20240110
  Serious: Yes (Hospitalization, Other)
  Sender: FDA-Public Use
  Company Number: JP-KYOWAKIRIN-2023AKK006252

PATIENT
  Age: 66 Year
  Sex: Female

DRUGS (7)
  1. PEGFILGRASTIM [Suspect]
     Active Substance: PEGFILGRASTIM
     Indication: Colony stimulating factor therapy
     Dosage: 3.6 MILLIGRAM, QD
     Route: 058
     Dates: start: 20230421, end: 20230421
  2. DOXORUBICIN HYDROCHLORIDE [Concomitant]
     Active Substance: DOXORUBICIN HYDROCHLORIDE
     Indication: Breast cancer
     Dosage: UNK
     Route: 065
  3. CYCLOPHOSPHAMIDE [Concomitant]
     Active Substance: CYCLOPHOSPHAMIDE
     Indication: Breast cancer
     Dosage: UNK
     Route: 065
  4. XYZAL [Concomitant]
     Active Substance: LEVOCETIRIZINE DIHYDROCHLORIDE
     Indication: Seasonal allergy
     Dosage: 5 MILLIGRAM, QD
     Route: 048
  5. SODIUM GUALENATE MONOHYDRATE [Concomitant]
     Active Substance: SODIUM GUALENATE MONOHYDRATE
     Indication: Stomatitis
     Dosage: 2 GRAM, ON AN AS-NEEDED BASIS
     Route: 050
  6. DECADRON [Concomitant]
     Active Substance: DEXAMETHASONE
     Indication: Vomiting
     Dosage: 8 MILLIGRAM, TID
     Route: 048
     Dates: start: 20230420, end: 20230422
  7. EMEND [Concomitant]
     Active Substance: APREPITANT
     Indication: Vomiting
     Dosage: 80 MILLIGRAM, BID
     Route: 048
     Dates: start: 20230420, end: 20230421

REACTIONS (5)
  - Febrile neutropenia [Recovered/Resolved]
  - Pain [Recovered/Resolved]
  - White blood cell count decreased [Unknown]
  - Pyrexia [Recovered/Resolved]
  - Platelet count decreased [Unknown]

NARRATIVE: CASE EVENT DATE: 20230421
